FAERS Safety Report 23015034 (Version 1)
Quarter: 2023Q4

REPORT INFORMATION
  Report Type: Other
  Country: None (occurrence: AU)
  Receive Date: 20231002
  Receipt Date: 20231002
  Transmission Date: 20240110
  Serious: Yes (Hospitalization, Other)
  Sender: FDA-Public Use
  Company Number: AU-Marksans Pharma Limited-2146555

PATIENT
  Age: 12 Year
  Sex: Female

DRUGS (3)
  1. ACETAMINOPHEN [Suspect]
     Active Substance: ACETAMINOPHEN
     Indication: Product used for unknown indication
     Route: 065
  2. IBUPROFEN [Suspect]
     Active Substance: IBUPROFEN
     Route: 065
  3. AMOXICILLIN [Suspect]
     Active Substance: AMOXICILLIN
     Route: 065

REACTIONS (6)
  - Vasoplegia syndrome [Unknown]
  - Drug-induced liver injury [Unknown]
  - Acute hepatic failure [Unknown]
  - Hypoglycaemia [Unknown]
  - Encephalopathy [Unknown]
  - Hyperlactacidaemia [Unknown]
